FAERS Safety Report 12440320 (Version 1)
Quarter: 2016Q2

REPORT INFORMATION
  Report Type: Spontaneous
  Country: US (occurrence: US)
  Receive Date: 20160606
  Receipt Date: 20160606
  Transmission Date: 20160815
  Serious: No
  Sender: FDA-Public Use
  Company Number: US-AMGEN-USASP2016028508

PATIENT
  Age: 65 Year
  Sex: Female
  Weight: 56.69 kg

DRUGS (6)
  1. CLONIDINE. [Concomitant]
     Active Substance: CLONIDINE
     Dosage: 0.1 MG, THREE TIMES DAILY
     Route: 048
     Dates: start: 201207
  2. PROCRIT [Suspect]
     Active Substance: ERYTHROPOIETIN
     Indication: ANAEMIA
     Dosage: 10000 UNIT, TWICE MONTHLY
     Route: 058
     Dates: start: 20120801, end: 201511
  3. PROCRIT [Suspect]
     Active Substance: ERYTHROPOIETIN
     Dosage: 10000 UNIT, ONCE MONTHLY
     Route: 058
     Dates: start: 201511
  4. LABETALOL [Concomitant]
     Active Substance: LABETALOL\LABETALOL HYDROCHLORIDE
     Indication: HYPERTENSION
     Dosage: 300 MG, TWICE TIMES DAILY
     Route: 048
     Dates: start: 201207
  5. SOLARIS [Concomitant]
     Indication: HAEMOLYTIC URAEMIC SYNDROME
     Dosage: UNK
  6. PROCARDIA [Concomitant]
     Active Substance: NIFEDIPINE
     Indication: HYPERTENSION
     Dosage: 90 MG, TWICE DAILY
     Route: 048
     Dates: start: 201207

REACTIONS (1)
  - Haemoglobin decreased [Unknown]

NARRATIVE: CASE EVENT DATE: 201602
